FAERS Safety Report 14977818 (Version 1)
Quarter: 2018Q2

REPORT INFORMATION
  Report Type: Spontaneous
  Country: DE (occurrence: DE)
  Receive Date: 20180606
  Receipt Date: 20180606
  Transmission Date: 20180711
  Serious: Yes (Other)
  Sender: FDA-Public Use
  Company Number: DE-TEVA-2018-DE-901024

PATIENT
  Age: 72 Year
  Sex: Female

DRUGS (1)
  1. PACLITAXEL (IN.PACT ADMIRAL) [Suspect]
     Active Substance: PACLITAXEL
     Dosage: ANGIOPLASTY OF THE DISTAL BYPASS ANASTOMOSIS AND POPLITEAL ARTERY USING 2 PACLITAXEL-ELUTING BALLOON
     Route: 050

REACTIONS (1)
  - Panniculitis [Recovered/Resolved]
